FAERS Safety Report 4977869-5 (Version None)
Quarter: 2006Q2

REPORT INFORMATION
  Report Type: 
  Country: None (occurrence: None)
  Receive Date: 20060420
  Receipt Date: 20060412
  Transmission Date: 20061013
  Serious: Yes (Hospitalization)
  Sender: FDA-Public Use
  Company Number: CN-GLAXOSMITHKLINE-B0420771A

PATIENT
  Age: 75 Year
  Sex: Male

DRUGS (2)
  1. BECOTIDE [Suspect]
     Indication: ASTHMA
     Dosage: 100MCG PER DAY
     Route: 055
     Dates: start: 20060404, end: 20060404
  2. PREDNISONE [Concomitant]
     Indication: WHEEZING
     Dosage: 5MG THREE TIMES PER DAY
     Route: 065
     Dates: start: 20060404

REACTIONS (2)
  - ASTHMA [None]
  - COMA [None]
